FAERS Safety Report 13499193 (Version 1)
Quarter: 2017Q2

REPORT INFORMATION
  Report Type: Spontaneous
  Country: US (occurrence: US)
  Receive Date: 20170428
  Receipt Date: 20170428
  Transmission Date: 20170830
  Serious: No
  Sender: FDA-Public Use
  Company Number: None

PATIENT
  Age: 78 Year
  Sex: Female
  Weight: 60.33 kg

DRUGS (3)
  1. REPATHA [Suspect]
     Active Substance: EVOLOCUMAB
     Indication: HYPERCHOLESTEROLAEMIA
     Dosage: 140MG/M 2X MONTH INJECTION
  2. REPATHA [Suspect]
     Active Substance: EVOLOCUMAB
     Indication: PERIPHERAL ARTERIAL OCCLUSIVE DISEASE
     Dosage: 140MG/M 2X MONTH INJECTION
  3. REPATHA [Suspect]
     Active Substance: EVOLOCUMAB
     Indication: ARTERIOSCLEROSIS CORONARY ARTERY
     Dosage: 140MG/M 2X MONTH INJECTION

REACTIONS (2)
  - Rhinorrhoea [None]
  - Viral upper respiratory tract infection [None]

NARRATIVE: CASE EVENT DATE: 20170427
